FAERS Safety Report 9017667 (Version 1)
Quarter: 2013Q1

REPORT INFORMATION
  Report Type: Spontaneous
  Country: US (occurrence: US)
  Receive Date: 20130118
  Receipt Date: 20130118
  Transmission Date: 20140127
  Serious: Yes (Other)
  Sender: FDA-Public Use
  Company Number: US-AMGEN-USASP2013003245

PATIENT
  Age: 60 Year
  Sex: Female
  Weight: 113.38 kg

DRUGS (1)
  1. PROCRIT [Suspect]
     Indication: RENAL FAILURE CHRONIC
     Dosage: 20000 UNIT OR 40000 UNIT
     Route: 058

REACTIONS (5)
  - Renal failure [Recovered/Resolved]
  - Heart valve incompetence [Not Recovered/Not Resolved]
  - Blood count abnormal [Not Recovered/Not Resolved]
  - Malaise [Recovering/Resolving]
  - Weight decreased [Not Recovered/Not Resolved]
